FAERS Safety Report 4462283-1 (Version None)
Quarter: 2004Q3

REPORT INFORMATION
  Report Type: 
  Country: None (occurrence: None)
  Receive Date: 20040929
  Receipt Date: 20040922
  Transmission Date: 20050211
  Serious: Yes (Death, Hospitalization)
  Sender: FDA-Public Use
  Company Number: PHBS2004US12726

PATIENT
  Age: 10 Year
  Sex: Female

DRUGS (5)
  1. PAMIDRONATE DISODIUM [Suspect]
     Indication: HYPERCALCAEMIA
     Dosage: 15 MG, ONCE/SINGLE
     Route: 042
  2. PAMIDRONATE DISODIUM [Suspect]
     Dosage: 20 MG, QW
     Route: 042
  3. PAMIDRONATE DISODIUM [Suspect]
     Dosage: 30 MG, QW
     Route: 042
  4. PAMIDRONATE DISODIUM [Suspect]
     Dosage: 60 MG, QW
     Route: 042
  5. CALCITONIN [Concomitant]

REACTIONS (12)
  - BACTERIAL INFECTION [None]
  - BONE METABOLISM DISORDER [None]
  - CENTRAL LINE INFECTION [None]
  - CONCOMITANT DISEASE PROGRESSION [None]
  - EPISTAXIS [None]
  - FUNGAL INFECTION [None]
  - HIP SURGERY [None]
  - JOINT DISLOCATION [None]
  - JOINT EFFUSION [None]
  - MULTI-ORGAN FAILURE [None]
  - RENAL FAILURE [None]
  - SEPSIS [None]
